FAERS Safety Report 20333400 (Version 2)
Quarter: 2022Q1

REPORT INFORMATION
  Report Type: Spontaneous
  Country: US (occurrence: US)
  Receive Date: 20220113
  Receipt Date: 20220121
  Transmission Date: 20220424
  Serious: No
  Sender: FDA-Public Use
  Company Number: US-INSUD PHARMA-2201US00037

PATIENT

DRUGS (1)
  1. BENZNIDAZOLE [Suspect]
     Active Substance: BENZNIDAZOLE
     Indication: Product used for unknown indication
     Dosage: 250 MILLIGRAM BID (2.5 TABS)
     Route: 048

REACTIONS (1)
  - Toxicity to various agents [Unknown]
